FAERS Safety Report 11647576 (Version 1)
Quarter: 2015Q4

REPORT INFORMATION
  Report Type: Spontaneous
  Country: US (occurrence: None)
  Receive Date: 20151020
  Receipt Date: 20151020
  Transmission Date: 20160304
  Serious: Yes (Other)
  Sender: FDA-Public Use
  Company Number: None

PATIENT
  Age: 60 Year
  Sex: Female

DRUGS (1)
  1. PROGESTERONE 200MG CAPSULE AKORN [Suspect]
     Active Substance: PROGESTERONE
     Indication: HORMONE REPLACEMENT THERAPY
     Dosage: SINCE 11/15/2014
     Route: 048

REACTIONS (2)
  - Product physical issue [None]
  - Haemorrhage [None]

NARRATIVE: CASE EVENT DATE: 20150510
